FAERS Safety Report 18671884 (Version 1)
Quarter: 2020Q4

REPORT INFORMATION
  Report Type: Spontaneous
  Country: FR (occurrence: FR)
  Receive Date: 20201229
  Receipt Date: 20201229
  Transmission Date: 20210114
  Serious: Yes (Hospitalization, Other)
  Sender: FDA-Public Use
  Company Number: FR-AUROBINDO-AUR-APL-2020-063169

PATIENT
  Age: 58 Year
  Sex: Male
  Weight: 72 kg

DRUGS (3)
  1. NAPROXEN. [Suspect]
     Active Substance: NAPROXEN
     Indication: ARTHRALGIA
     Dosage: 1100 MILLIGRAM, ONCE A DAY
     Route: 048
     Dates: start: 20200916, end: 20200923
  2. ACECLOFENAC [Suspect]
     Active Substance: ACECLOFENAC
     Indication: ARTHRALGIA
     Dosage: 200 MILLIGRAM, ONCE A DAY
     Route: 048
     Dates: start: 20200928, end: 20201011
  3. AUGMENTIN [Concomitant]
     Active Substance: AMOXICILLIN\CLAVULANATE POTASSIUM
     Indication: OEDEMA PERIPHERAL
     Dosage: 3 GRAM, ONCE A DAY
     Route: 048
     Dates: start: 20200916, end: 20200919

REACTIONS (1)
  - Arthritis fungal [Recovering/Resolving]

NARRATIVE: CASE EVENT DATE: 20201027
